FAERS Safety Report 20032069 (Version 1)
Quarter: 2021Q4

REPORT INFORMATION
  Report Type: Spontaneous
  Country: US (occurrence: US)
  Receive Date: 20211103
  Receipt Date: 20211103
  Transmission Date: 20220303
  Serious: No
  Sender: FDA-Public Use
  Company Number: US-ALLERGAN-2114505US

PATIENT
  Age: 68 Year
  Sex: Female

DRUGS (6)
  1. VRAYLAR [Suspect]
     Active Substance: CARIPRAZINE
     Indication: Suicidal ideation
     Dosage: 1.5 MG, QAM
     Route: 048
     Dates: start: 202103, end: 20210406
  2. VRAYLAR [Suspect]
     Active Substance: CARIPRAZINE
     Indication: Bipolar disorder
  3. VRAYLAR [Suspect]
     Active Substance: CARIPRAZINE
     Indication: Homicidal ideation
  4. METOPROLOL [Concomitant]
     Active Substance: METOPROLOL
     Indication: Hypertension
     Dosage: 25 MG, BID
     Route: 048
  5. PRAVASTATIN [Concomitant]
     Active Substance: PRAVASTATIN
     Indication: Blood cholesterol increased
     Dosage: 20 MG, QHS
     Route: 048
  6. BUSPAR [Concomitant]
     Active Substance: BUSPIRONE HYDROCHLORIDE
     Indication: Anxiety
     Dosage: 5 MG, BID
     Route: 048

REACTIONS (7)
  - Feeling abnormal [Not Recovered/Not Resolved]
  - Disturbance in attention [Not Recovered/Not Resolved]
  - Reading disorder [Not Recovered/Not Resolved]
  - Road traffic accident [Recovered/Resolved]
  - Product use in unapproved indication [Unknown]
  - Gait disturbance [Unknown]
  - Product label issue [Unknown]

NARRATIVE: CASE EVENT DATE: 20210301
